FAERS Safety Report 6465052-6 (Version None)
Quarter: 2009Q4

REPORT INFORMATION
  Report Type: 
  Country: None (occurrence: None)
  Receive Date: 20091201
  Receipt Date: 20091117
  Transmission Date: 20100525
  Serious: Yes (Death)
  Sender: FDA-Public Use
  Company Number: DE-MYLANLABS-2009S1019855

PATIENT
  Age: 39 Year
  Sex: Male

DRUGS (4)
  1. DOXEPIN HCL [Suspect]
     Indication: ACCIDENTAL OVERDOSE
  2. DOXEPIN HCL [Suspect]
     Indication: INSOMNIA
  3. DOXEPIN HCL [Suspect]
     Dosage: HE TOOK HIS DOXEPIN MEDICATION ^IN PHASES^
  4. DOXEPIN HCL [Suspect]
     Dosage: HE TOOK HIS DOXEPIN MEDICATION ^IN PHASES^

REACTIONS (2)
  - DEATH [None]
  - DRUG TOXICITY [None]
